FAERS Safety Report 7442433-5 (Version None)
Quarter: 2011Q2

REPORT INFORMATION
  Report Type: 
  Country: None (occurrence: None)
  Receive Date: 20110426
  Receipt Date: 20110426
  Transmission Date: 20111010
  Serious: Yes (Life-Threatening)
  Sender: FDA-Public Use
  Company Number: None

PATIENT
  Age: 66 Year
  Sex: Male
  Weight: 83 kg

DRUGS (1)
  1. PHYTONADIONE [Suspect]
     Indication: HAEMORRHAGE
     Dosage: 10MG ONE TIME IV DRIP
     Route: 041
     Dates: start: 20110420, end: 20110420

REACTIONS (3)
  - LOSS OF CONSCIOUSNESS [None]
  - CARDIO-RESPIRATORY ARREST [None]
  - INFUSION RELATED REACTION [None]
